FAERS Safety Report 18802621 (Version 1)
Quarter: 2021Q1

REPORT INFORMATION
  Report Type: Other
  Country: IT (occurrence: IT)
  Receive Date: 20210129
  Receipt Date: 20210129
  Transmission Date: 20210419
  Serious: Yes (Hospitalization)
  Sender: FDA-Public Use
  Company Number: IT-MACLEODS PHARMACEUTICALS US LTD-MAC2021029884

PATIENT

DRUGS (4)
  1. SERTRALINE HYDROCHLORIDE. [Concomitant]
     Active Substance: SERTRALINE HYDROCHLORIDE
     Indication: PRODUCT USED FOR UNKNOWN INDICATION
     Dosage: UNK
     Route: 065
  2. EN [Suspect]
     Active Substance: DELORAZEPAM
     Indication: DRUG ABUSE
     Dosage: 50 GTT, SINGLE
     Route: 065
     Dates: start: 20201126, end: 20201126
  3. PARACETAMOL [Suspect]
     Active Substance: ACETAMINOPHEN
     Indication: DRUG ABUSE
     Dosage: 3000 MILLIGRAM, SINGLE
     Route: 065
     Dates: start: 20201126, end: 20201126
  4. ARIPIPRAZOLE. [Suspect]
     Active Substance: ARIPIPRAZOLE
     Indication: DRUG ABUSE
     Dosage: 90 MILLIGRAM, SINGLE
     Route: 065
     Dates: start: 20201126, end: 20201126

REACTIONS (4)
  - Drug abuse [Not Recovered/Not Resolved]
  - Hypotension [Not Recovered/Not Resolved]
  - Somnolence [Not Recovered/Not Resolved]
  - Bradycardia [Not Recovered/Not Resolved]

NARRATIVE: CASE EVENT DATE: 20201126
